FAERS Safety Report 5777086-5 (Version None)
Quarter: 2008Q2

REPORT INFORMATION
  Report Type: 
  Country: None (occurrence: None)
  Receive Date: 20080618
  Receipt Date: 20080611
  Transmission Date: 20081010
  Serious: Yes (Other)
  Sender: FDA-Public Use
  Company Number: ES-ASTRAZENECA-2008AC01498

PATIENT
  Age: 75 Year
  Sex: Male

DRUGS (2)
  1. SEROQUEL [Suspect]
     Indication: PSYCHOTIC DISORDER
     Route: 048
     Dates: start: 20080227, end: 20080229
  2. RENITEC [Concomitant]
     Route: 048
     Dates: start: 20070101

REACTIONS (2)
  - CONFUSIONAL STATE [None]
  - NIGHT SWEATS [None]
